FAERS Safety Report 17949816 (Version 2)
Quarter: 2020Q3

REPORT INFORMATION
  Report Type: Report from Study
  Country: US (occurrence: US)
  Receive Date: 20200625
  Receipt Date: 20200806
  Transmission Date: 20201103
  Serious: Yes (Hospitalization)
  Sender: FDA-Public Use
  Company Number: US-ACTELION-A-NJ2018-168887

PATIENT
  Sex: Female
  Weight: 50.79 kg

DRUGS (4)
  1. VELETRI [Suspect]
     Active Substance: EPOPROSTENOL
     Indication: PULMONARY ARTERIAL HYPERTENSION
     Dosage: 39 NG/KG, PER MIN
     Route: 042
  2. REVATIO [Concomitant]
     Active Substance: SILDENAFIL CITRATE
  3. VELETRI [Suspect]
     Active Substance: EPOPROSTENOL
     Dosage: 39 NG/KG, PER MIN
     Route: 042
  4. COUMADIN [Concomitant]
     Active Substance: WARFARIN SODIUM

REACTIONS (14)
  - Back pain [Unknown]
  - Dyspnoea [Unknown]
  - Sinusitis [Unknown]
  - Rash macular [Unknown]
  - Pain in jaw [Unknown]
  - Asthenia [Unknown]
  - Urinary tract infection [Unknown]
  - Tooth fracture [Unknown]
  - Hypoxia [Unknown]
  - Flushing [Unknown]
  - Rash pustular [Unknown]
  - Tooth abscess [Unknown]
  - Abdominal pain [Unknown]
  - Dyspnoea exertional [Unknown]
